FAERS Safety Report 12856776 (Version 1)
Quarter: 2016Q4

REPORT INFORMATION
  Report Type: Spontaneous
  Country: US (occurrence: US)
  Receive Date: 20161017
  Receipt Date: 20161017
  Transmission Date: 20170207
  Serious: Yes (Life-Threatening, Other)
  Sender: FDA-Public Use
  Company Number: None

PATIENT
  Age: 52 Year
  Sex: Female
  Weight: 78.3 kg

DRUGS (18)
  1. ANORO ELLIPTA [Suspect]
     Active Substance: UMECLIDINIUM BROMIDE\VILANTEROL TRIFENATATE
     Indication: CHRONIC OBSTRUCTIVE PULMONARY DISEASE
     Route: 055
     Dates: start: 20160920, end: 20161006
  2. METHYL COBALAMIN [Concomitant]
  3. NICOTINE GUM [Concomitant]
     Active Substance: NICOTINE
  4. FLONASE [Concomitant]
     Active Substance: FLUTICASONE PROPIONATE
  5. CLARITIN [Concomitant]
     Active Substance: LORATADINE
  6. MULTI VITAMIN [Concomitant]
     Active Substance: VITAMINS
  7. VITAMIN E [Concomitant]
     Active Substance: .ALPHA.-TOCOPHEROL
  8. B12 LIQUID [Concomitant]
  9. IBUPROFEN LIQUID GELS [Concomitant]
  10. VITAMIN B COMPLEX [Concomitant]
     Active Substance: CYANOCOBALAMIN\DEXPANTHENOL\NIACINAMIDE\PYRIDOXINE HYDROCHLORIDE\RIBOFLAVIN 5^-PHOSPHATE SODIUM\THIAMINE HYDROCHLORIDE\VITAMIN B COMPLEX
  11. MIRTAZIPINE [Concomitant]
     Active Substance: MIRTAZAPINE
  12. TYLENOL [Concomitant]
     Active Substance: ACETAMINOPHEN
  13. C [Concomitant]
  14. MAGNESIUM [Concomitant]
     Active Substance: MAGNESIUM
  15. ALBUTEROL. [Concomitant]
     Active Substance: ALBUTEROL
  16. FLOVENT [Concomitant]
     Active Substance: FLUTICASONE PROPIONATE
  17. CLOBETASOL [Concomitant]
     Active Substance: CLOBETASOL
  18. VITAMIN B12 [Concomitant]
     Active Substance: CYANOCOBALAMIN

REACTIONS (2)
  - Wheezing [None]
  - Respiratory arrest [None]

NARRATIVE: CASE EVENT DATE: 20161006
